FAERS Safety Report 19976762 (Version 1)
Quarter: 2021Q4

REPORT INFORMATION
  Report Type: Spontaneous
  Country: US (occurrence: US)
  Receive Date: 20211020
  Receipt Date: 20211020
  Transmission Date: 20220303
  Serious: Yes (Other)
  Sender: FDA-Public Use
  Company Number: US-ELI_LILLY_AND_COMPANY-US202110003622

PATIENT
  Sex: Male

DRUGS (1)
  1. HUMALOG [Suspect]
     Active Substance: INSULIN LISPRO
     Indication: Product used for unknown indication
     Dosage: 36 U, DAILY
     Route: 065

REACTIONS (4)
  - Hepatic cirrhosis [Unknown]
  - Renal disorder [Unknown]
  - Neuropathy peripheral [Unknown]
  - Pain [Unknown]
